FAERS Safety Report 15068220 (Version 1)
Quarter: 2018Q2

REPORT INFORMATION
  Report Type: Spontaneous
  Country: SE (occurrence: SE)
  Receive Date: 20180626
  Receipt Date: 20180626
  Transmission Date: 20180711
  Serious: Yes (Hospitalization)
  Sender: FDA-Public Use
  Company Number: SE-MYLANLABS-2018M1044539

PATIENT
  Age: 74 Year
  Sex: Female

DRUGS (14)
  1. TROMBYL [Concomitant]
     Active Substance: ASPIRIN
     Indication: PRODUCT USED FOR UNKNOWN INDICATION
     Route: 048
  2. CANDESARSTAD [Concomitant]
     Indication: PRODUCT USED FOR UNKNOWN INDICATION
  3. MOVICOL [Concomitant]
     Active Substance: POLYETHYLENE GLYCOL 3350\POTASSIUM CHLORIDE\SODIUM BICARBONATE\SODIUM CHLORIDE
     Indication: PRODUCT USED FOR UNKNOWN INDICATION
  4. BETAMETHASONE. [Concomitant]
     Active Substance: BETAMETHASONE
     Indication: PRODUCT USED FOR UNKNOWN INDICATION
  5. CILAXORAL [Concomitant]
     Active Substance: SODIUM PICOSULFATE
     Indication: PRODUCT USED FOR UNKNOWN INDICATION
  6. FOLSAEURE [Concomitant]
     Active Substance: FOLIC ACID
     Indication: PRODUCT USED FOR UNKNOWN INDICATION
  7. METFORMIN [Suspect]
     Active Substance: METFORMIN HYDROCHLORIDE
     Dosage: 2 TABLETS PER DAG
     Route: 048
  8. BETOLVEX                           /00056201/ [Concomitant]
     Active Substance: CYANOCOBALAMIN
     Indication: PRODUCT USED FOR UNKNOWN INDICATION
  9. METFORMIN [Suspect]
     Active Substance: METFORMIN HYDROCHLORIDE
     Indication: PRODUCT USED FOR UNKNOWN INDICATION
     Dosage: 1 TABLET TILL LUNCH
  10. SIMVASTATIN. [Concomitant]
     Active Substance: SIMVASTATIN
     Indication: PRODUCT USED FOR UNKNOWN INDICATION
  11. ALVEDON [Concomitant]
     Active Substance: ACETAMINOPHEN
     Indication: PRODUCT USED FOR UNKNOWN INDICATION
  12. KALEORID [Concomitant]
     Active Substance: POTASSIUM CHLORIDE
     Indication: PRODUCT USED FOR UNKNOWN INDICATION
  13. OMEPRAZOLE. [Concomitant]
     Active Substance: OMEPRAZOLE
     Indication: PRODUCT USED FOR UNKNOWN INDICATION
  14. OXYNORM [Concomitant]
     Active Substance: OXYCODONE HYDROCHLORIDE
     Indication: PRODUCT USED FOR UNKNOWN INDICATION

REACTIONS (1)
  - Chest pain [Unknown]

NARRATIVE: CASE EVENT DATE: 20171119
